FAERS Safety Report 17493133 (Version 1)
Quarter: 2020Q1

REPORT INFORMATION
  Report Type: Spontaneous
  Country: US (occurrence: US)
  Receive Date: 20200303
  Receipt Date: 20200303
  Transmission Date: 20200409
  Serious: No
  Sender: FDA-Public Use
  Company Number: US-AMNEAL PHARMACEUTICALS-2019-IPXL-00307

PATIENT
  Sex: Male

DRUGS (2)
  1. RYTARY [Suspect]
     Active Substance: CARBIDOPA\LEVODOPA
     Dosage: 4 DOSAGE FORM, 8/DAY (36.25MG/145MG CAPSULES, 3 CAPSULES BY MOUTH ALTERNATING WITH)
     Route: 048
  2. RYTARY [Suspect]
     Active Substance: CARBIDOPA\LEVODOPA
     Indication: PARKINSON^S DISEASE
     Dosage: 3 DOSAGE FORM (36.25MG/145MG ALTERNATING WITH 4 CAPSULES BY MOUTH EVERY 3 HOURS)
     Route: 048

REACTIONS (2)
  - Prescribed overdose [Unknown]
  - Fall [Unknown]
